FAERS Safety Report 24213154 (Version 1)
Quarter: 2024Q3

REPORT INFORMATION
  Report Type: Spontaneous
  Country: CA (occurrence: CA)
  Receive Date: 20240815
  Receipt Date: 20240815
  Transmission Date: 20241016
  Serious: Yes (Other)
  Sender: PFIZER
  Company Number: CA-PFIZER INC-202400233735

PATIENT
  Age: 53 Year
  Sex: Female

DRUGS (2)
  1. DOXORUBICIN HYDROCHLORIDE [Suspect]
     Active Substance: DOXORUBICIN HYDROCHLORIDE
     Indication: Breast cancer
     Dosage: UNK, 1 EVERY 2 WEEKS
  2. TAXOL [Suspect]
     Active Substance: PACLITAXEL
     Dosage: UNK, 1 EVERY 2 WEEKS
     Route: 042

REACTIONS (6)
  - Cognitive disorder [Recovering/Resolving]
  - Disturbance in attention [Recovering/Resolving]
  - Impaired work ability [Recovering/Resolving]
  - Loss of personal independence in daily activities [Recovering/Resolving]
  - Memory impairment [Recovering/Resolving]
  - Off label use [Unknown]
